FAERS Safety Report 17338616 (Version 1)
Quarter: 2020Q1

REPORT INFORMATION
  Report Type: Spontaneous
  Country: FR (occurrence: FR)
  Receive Date: 20200129
  Receipt Date: 20200129
  Transmission Date: 20200409
  Serious: Yes (Hospitalization)
  Sender: FDA-Public Use
  Company Number: PHHY2018FR153869

PATIENT
  Age: 41 Year
  Sex: Female
  Weight: 98 kg

DRUGS (1)
  1. AMOXICILLIN. [Suspect]
     Active Substance: AMOXICILLIN
     Indication: SINUSITIS
     Dosage: UNK
     Route: 048
     Dates: start: 20181002, end: 20181009

REACTIONS (4)
  - Product prescribing error [Recovered/Resolved]
  - Dermatitis exfoliative generalised [Recovering/Resolving]
  - Eosinophilia [Recovering/Resolving]
  - Acute generalised exanthematous pustulosis [Recovered/Resolved]

NARRATIVE: CASE EVENT DATE: 201810
